FAERS Safety Report 5267065-9 (Version None)
Quarter: 2007Q1

REPORT INFORMATION
  Report Type: 
  Country: None (occurrence: None)
  Receive Date: 20061213
  Receipt Date: 20030120
  Transmission Date: 20070707
  Serious: Yes (Hospitalization)
  Sender: FDA-Public Use
  Company Number: 2003UW00867

PATIENT
  Sex: Female

DRUGS (1)
  1. TAMOXIFEN CITRATE [Suspect]
     Dates: start: 20010101

REACTIONS (1)
  - CERVIX DISORDER [None]
